FAERS Safety Report 10239598 (Version 1)
Quarter: 2014Q2

REPORT INFORMATION
  Report Type: Spontaneous
  Country: US (occurrence: US)
  Receive Date: 20140616
  Receipt Date: 20140616
  Transmission Date: 20141212
  Serious: No
  Sender: FDA-Public Use
  Company Number: US-009507513-1405USA003181

PATIENT
  Sex: Female

DRUGS (1)
  1. DR. SCHOLL^S ONE STEP CORN REMOVERS [Suspect]
     Indication: SKIN PAPILLOMA
     Dosage: UNK, UNKNOWN
     Route: 061

REACTIONS (1)
  - Scab [Not Recovered/Not Resolved]
